FAERS Safety Report 8949886 (Version 1)
Quarter: 2012Q4

REPORT INFORMATION
  Report Type: 
  Country: JP (occurrence: JP)
  Receive Date: 20121206
  Receipt Date: 20121206
  Transmission Date: 20130627
  Serious: Yes (Hospitalization)
  Sender: FDA-Public Use
  Company Number: JP-PFIZER INC-2011258590

PATIENT
  Age: 63 Year
  Sex: Male
  Weight: 72 kg

DRUGS (6)
  1. AXITINIB [Suspect]
     Indication: METASTATIC RENAL CELL CARCINOMA
     Dosage: 2 mg, 2x/day
     Route: 048
     Dates: start: 20091002, end: 20111024
  2. AXITINIB [Suspect]
     Dosage: 2 mg, 2x/day
     Route: 048
     Dates: start: 20111114, end: 20121109
  3. BLOPRESS [Concomitant]
     Indication: HYPERTENSION
     Dosage: 8 mg, once daily after breakfast
     Route: 048
     Dates: start: 20100416
  4. ALOSITOL [Concomitant]
     Indication: HYPERURICAEMIA
     Dosage: 100 mg, once daily after breakfast
     Route: 048
  5. ADALAT CR [Concomitant]
     Indication: HYPERTENSION
     Dosage: 20 mg, as needed
     Route: 048
     Dates: start: 20110218
  6. WYPAX [Concomitant]
     Indication: ANXIETY
     Dosage: 0.5 mg, once daily
     Route: 048

REACTIONS (1)
  - Diplopia [Recovered/Resolved]
